FAERS Safety Report 20462124 (Version 3)
Quarter: 2022Q1

REPORT INFORMATION
  Report Type: Spontaneous
  Country: GB (occurrence: GB)
  Receive Date: 20220211
  Receipt Date: 20220325
  Transmission Date: 20220423
  Serious: Yes (Other)
  Sender: FDA-Public Use
  Company Number: GB-BAYER-2022A019980

PATIENT
  Age: 1 Year
  Sex: Male

DRUGS (1)
  1. VITRAKVI [Suspect]
     Active Substance: LAROTRECTINIB
     Indication: Malignant neoplasm of spinal cord
     Dosage: 50 MG, BID
     Route: 048
     Dates: start: 202108

REACTIONS (1)
  - Nephrocalcinosis [None]

NARRATIVE: CASE EVENT DATE: 20211101
